FAERS Safety Report 11725660 (Version 1)
Quarter: 2015Q4

REPORT INFORMATION
  Report Type: Spontaneous
  Country: US (occurrence: US)
  Receive Date: 20151110
  Receipt Date: 20151110
  Transmission Date: 20160304
  Serious: No
  Sender: FDA-Public Use
  Company Number: US-ELI_LILLY_AND_COMPANY-US201109006300

PATIENT
  Age: 60 Year
  Sex: Female

DRUGS (2)
  1. FORTEO [Suspect]
     Active Substance: TERIPARATIDE
     Dosage: 20 UG, QD
     Route: 065
     Dates: end: 20110923
  2. FORTEO [Suspect]
     Active Substance: TERIPARATIDE
     Indication: OSTEOPOROSIS
     Dosage: 20 UG, QD
     Route: 065
     Dates: start: 20110901

REACTIONS (15)
  - Dizziness [Not Recovered/Not Resolved]
  - Fibromyalgia [Unknown]
  - Functional gastrointestinal disorder [Unknown]
  - Myalgia [Not Recovered/Not Resolved]
  - Sleep disorder due to general medical condition, insomnia type [Unknown]
  - Pain of skin [Unknown]
  - Constipation [Not Recovered/Not Resolved]
  - Arthralgia [Unknown]
  - Tenderness [Unknown]
  - Vertigo [Unknown]
  - Heart rate increased [Not Recovered/Not Resolved]
  - Bowel movement irregularity [Recovering/Resolving]
  - Nausea [Not Recovered/Not Resolved]
  - Drug dose omission [Unknown]
  - Balance disorder [Unknown]

NARRATIVE: CASE EVENT DATE: 2011
